FAERS Safety Report 6020803-X (Version None)
Quarter: 2008Q4

REPORT INFORMATION
  Report Type: 
  Country: None (occurrence: None)
  Receive Date: 20081229
  Receipt Date: 20081218
  Transmission Date: 20090506
  Serious: Yes (Death)
  Sender: FDA-Public Use
  Company Number: US-JNJFOC-20081206096

PATIENT
  Age: 35 Year
  Sex: Male

DRUGS (5)
  1. HALOPERIDOL [Suspect]
     Indication: HALLUCINATION
     Route: 030
  2. HALOPERIDOL [Suspect]
     Indication: DELUSION
     Route: 030
  3. COCAINE [Suspect]
     Indication: DRUG USE FOR UNKNOWN INDICATION
     Route: 065
  4. LORAZEPAM [Suspect]
     Indication: HALLUCINATION
     Route: 048
  5. LORAZEPAM [Suspect]
     Indication: DELUSION
     Route: 048

REACTIONS (3)
  - ADVERSE DRUG REACTION [None]
  - CARDIAC ARREST [None]
  - DRUG TOXICITY [None]
